FAERS Safety Report 15566411 (Version 1)
Quarter: 2018Q4

REPORT INFORMATION
  Report Type: Spontaneous
  Country: PT (occurrence: PT)
  Receive Date: 20181030
  Receipt Date: 20181030
  Transmission Date: 20190205
  Serious: Yes (Hospitalization)
  Sender: FDA-Public Use
  Company Number: PT-PENTEC HEALTH-2018PEN00057

PATIENT
  Age: 79 Year
  Sex: Male

DRUGS (1)
  1. ROPIVACAINE HYDROCHLORIDE. [Suspect]
     Active Substance: ROPIVACAINE HYDROCHLORIDE
     Indication: NERVE BLOCK
     Dosage: 3.5 ML (1%), ONCE
     Route: 065

REACTIONS (1)
  - Anaesthetic complication [Recovering/Resolving]
